FAERS Safety Report 6638272-5 (Version None)
Quarter: 2010Q1

REPORT INFORMATION
  Report Type: 
  Country: None (occurrence: None)
  Receive Date: 20100317
  Receipt Date: 20100308
  Transmission Date: 20100710
  Serious: Yes (Other)
  Sender: FDA-Public Use
  Company Number: FR-ROCHE-689546

PATIENT
  Age: 19 Year
  Sex: Male

DRUGS (2)
  1. ISOTRETINOIN [Suspect]
     Indication: ACNE
     Route: 065
  2. ISOTRETINOIN [Suspect]
     Dosage: DOSAGE REDUCED.
     Route: 065

REACTIONS (1)
  - KELOID SCAR [None]
